FAERS Safety Report 6864631-1 (Version None)
Quarter: 2010Q3

REPORT INFORMATION
  Report Type: 
  Country: None (occurrence: None)
  Receive Date: 20100721
  Receipt Date: 20080516
  Transmission Date: 20110219
  Serious: Yes (Other)
  Sender: FDA-Public Use
  Company Number: US-PFIZER INC-2008027162

PATIENT
  Sex: Female
  Weight: 77 kg

DRUGS (3)
  1. CHANTIX [Suspect]
     Indication: SMOKING CESSATION THERAPY
     Dates: start: 20080201
  2. ORAL CONTRACEPTIVE NOS [Concomitant]
  3. CELEXA [Concomitant]
     Indication: DEPRESSION

REACTIONS (6)
  - AGITATION [None]
  - DEPRESSION [None]
  - INSOMNIA [None]
  - NAUSEA [None]
  - NIGHTMARE [None]
  - VOMITING [None]
